FAERS Safety Report 5522896-2 (Version None)
Quarter: 2007Q4

REPORT INFORMATION
  Report Type: 
  Country: None (occurrence: None)
  Receive Date: 20071115
  Receipt Date: 20071105
  Transmission Date: 20080405
  Serious: Yes (Hospitalization)
  Sender: FDA-Public Use
  Company Number: 2007-167284-NL

PATIENT
  Age: 57 Year

DRUGS (3)
  1. MIRTAZAPINE [Suspect]
     Indication: DEPRESSION
     Dosage: 30 MG
     Dates: start: 20071101, end: 20071101
  2. ALPRAZOLAM [Suspect]
     Dosage: 0.5 DF
     Dates: start: 20071105
  3. VENOCUR (ADONIS VERNAILS + AESCULUS HIPPOCASTANUS + SCILLA MARITIMA [Concomitant]

REACTIONS (2)
  - PAIN [None]
  - PLEURAL DISORDER [None]
